FAERS Safety Report 11082656 (Version 1)
Quarter: 2015Q2

REPORT INFORMATION
  Report Type: Report from Study
  Country: US (occurrence: US)
  Receive Date: 20150501
  Receipt Date: 20150501
  Transmission Date: 20150821
  Serious: No
  Sender: FDA-Public Use
  Company Number: US-ABBVIE-14P-163-1241036-00

PATIENT
  Age: 32 Year
  Sex: Male
  Weight: 73.09 kg

DRUGS (4)
  1. VALIUM [Concomitant]
     Active Substance: DIAZEPAM
     Indication: ANXIETY
  2. EFFEXOR [Concomitant]
     Active Substance: VENLAFAXINE HYDROCHLORIDE
     Indication: DEPRESSION
  3. ANDROGEL [Suspect]
     Active Substance: TESTOSTERONE
     Indication: BLOOD TESTOSTERONE DECREASED
     Route: 061
     Dates: start: 20140521
  4. SEROQUEL [Concomitant]
     Active Substance: QUETIAPINE FUMARATE
     Indication: INSOMNIA

REACTIONS (4)
  - Incorrect dose administered [Unknown]
  - Fatigue [Recovered/Resolved]
  - Heart rate increased [Recovered/Resolved]
  - Drug prescribing error [Unknown]

NARRATIVE: CASE EVENT DATE: 20140521
